FAERS Safety Report 4604917-4 (Version None)
Quarter: 2005Q1

REPORT INFORMATION
  Report Type: 
  Country: None (occurrence: None)
  Receive Date: 20050310
  Receipt Date: 20050310
  Transmission Date: 20050727
  Serious: Yes (Life-Threatening, Disabling)
  Sender: FDA-Public Use
  Company Number: None

PATIENT
  Age: 41 Year
  Sex: Female
  Weight: 124.7392 kg

DRUGS (1)
  1. GENTAMICIN [Suspect]
     Indication: OSTEOMYELITIS
     Dosage: 1 TIME DAILY      INTRAVENOU
     Route: 042
     Dates: start: 20040109, end: 20040131

REACTIONS (5)
  - BALANCE DISORDER [None]
  - BLOOD CREATININE INCREASED [None]
  - OSCILLOPSIA [None]
  - TINNITUS [None]
  - VESTIBULAR DISORDER [None]
